FAERS Safety Report 14955805 (Version 1)
Quarter: 2018Q2

REPORT INFORMATION
  Report Type: Spontaneous
  Country: FR (occurrence: FR)
  Receive Date: 20180531
  Receipt Date: 20180531
  Transmission Date: 20180711
  Serious: Yes (Other)
  Sender: FDA-Public Use
  Company Number: FR-MERCK KGAA-2048759

PATIENT
  Age: 62 Year
  Sex: Female
  Weight: 78 kg

DRUGS (2)
  1. TEGELINE (IMMUNOGLOBULIN HUMAN NORMAL) [Concomitant]
     Dates: start: 2005
  2. NOVOTHYROX [Suspect]
     Active Substance: LEVOTHYROXINE SODIUM
     Indication: AUTOIMMUNE THYROIDITIS
     Route: 048
     Dates: start: 20170415, end: 201711

REACTIONS (24)
  - Myalgia [Recovered/Resolved]
  - Asthenia [Recovered/Resolved]
  - Hypotonia [Recovered/Resolved]
  - Malaise [Recovered/Resolved]
  - Osteotomy [None]
  - Muscle spasms [Recovered/Resolved]
  - Fear of falling [Recovered/Resolved]
  - Pain [Recovered/Resolved]
  - Insomnia [Recovered/Resolved]
  - Arthralgia [Recovered/Resolved]
  - Fatigue [Recovered/Resolved]
  - Tachycardia [Recovered/Resolved]
  - Discomfort [Recovered/Resolved]
  - Decreased interest [Recovered/Resolved]
  - Emotional distress [Recovered/Resolved]
  - Headache [Recovered/Resolved]
  - Abdominal pain [Recovered/Resolved]
  - General physical health deterioration [Recovering/Resolving]
  - Walking disability [Recovered/Resolved]
  - Self esteem decreased [Recovered/Resolved]
  - Sleep disorder [Recovered/Resolved]
  - Hot flush [Recovered/Resolved]
  - Palpitations [Recovered/Resolved]
  - Blood thyroid stimulating hormone decreased [Recovered/Resolved]

NARRATIVE: CASE EVENT DATE: 201705
